FAERS Safety Report 10756914 (Version 1)
Quarter: 2015Q1

REPORT INFORMATION
  Report Type: Spontaneous
  Country: US (occurrence: US)
  Receive Date: 20150203
  Receipt Date: 20150203
  Transmission Date: 20150721
  Serious: Yes (Death, Hospitalization)
  Sender: FDA-Public Use
  Company Number: PHHY2015US010448

PATIENT
  Sex: Female

DRUGS (4)
  1. CLINDAMYCIN PHOSPHATE. [Suspect]
     Active Substance: CLINDAMYCIN PHOSPHATE
     Indication: NECROTISING FASCIITIS
     Dosage: UNK
     Route: 065
  2. IMIPENEM [Suspect]
     Active Substance: IMIPENEM
     Indication: NECROTISING FASCIITIS
     Dosage: UNK
     Route: 065
  3. VANCOMYCIN HYDROCHLORIDE. [Suspect]
     Active Substance: VANCOMYCIN HYDROCHLORIDE
     Indication: NECROTISING FASCIITIS
     Route: 065
  4. VANCOMYCIN HYDROCHLORIDE. [Suspect]
     Active Substance: VANCOMYCIN HYDROCHLORIDE
     Route: 048

REACTIONS (9)
  - Megacolon [Unknown]
  - Clostridium difficile infection [Fatal]
  - Pyrexia [Fatal]
  - Diarrhoea [Fatal]
  - Leukocytosis [Fatal]
  - Renal failure [Unknown]
  - Incorrect drug administration duration [Unknown]
  - Lactic acidosis [Unknown]
  - Hypotension [Unknown]
